FAERS Safety Report 8870556 (Version 2)
Quarter: 2013Q1

REPORT INFORMATION
  Report Type: Spontaneous
  Country: US (occurrence: None)
  Receive Date: 20121024
  Receipt Date: 20121106
  Transmission Date: 20140127
  Serious: Yes (Hospitalization, Other)
  Sender: FDA-Public Use
  Company Number: DSU-2012-07911

PATIENT
  Age: 53 Year
  Sex: Male
  Weight: 88 kg

DRUGS (3)
  1. BENICAR HCT [Suspect]
     Indication: HYPERTENSION
     Route: 048
     Dates: start: 2010
  2. PANTOPRAZOLE [Concomitant]
  3. LUNESTA (ESZOPICLONE) [Concomitant]

REACTIONS (7)
  - Blood pressure increased [None]
  - Incorrect storage of drug [None]
  - Local swelling [None]
  - Joint swelling [None]
  - Renal failure [None]
  - Labile blood pressure [None]
  - Product substitution issue [None]
